FAERS Safety Report 19966485 (Version 1)
Quarter: 2021Q4

REPORT INFORMATION
  Report Type: Spontaneous
  Country: US (occurrence: US)
  Receive Date: 20211019
  Receipt Date: 20211019
  Transmission Date: 20220304
  Serious: Yes (Other)
  Sender: FDA-Public Use
  Company Number: US-DRREDDYS-LIT/USA/21/0142716

PATIENT
  Age: 63 Year
  Sex: Female

DRUGS (4)
  1. DOXORUBICIN HYDROCHLORIDE [Suspect]
     Active Substance: DOXORUBICIN HYDROCHLORIDE
     Indication: Cytoreductive surgery
  2. MITOMYCIN [Suspect]
     Active Substance: MITOMYCIN
     Indication: Cytoreductive surgery
  3. DEXTROSE [Suspect]
     Active Substance: DEXTROSE
     Indication: Cytoreductive surgery
     Dosage: 1.5 L/M2
  4. FLUOROURACIL [Suspect]
     Active Substance: FLUOROURACIL
     Indication: Cytoreductive surgery

REACTIONS (1)
  - Pancreatitis [Unknown]
